FAERS Safety Report 8429189-4 (Version None)
Quarter: 2012Q2

REPORT INFORMATION
  Report Type: 
  Country: None (occurrence: None)
  Receive Date: 20120612
  Receipt Date: 20120604
  Transmission Date: 20120825
  Serious: Yes (Other)
  Sender: FDA-Public Use
  Company Number: PHHY2012IT049335

PATIENT

DRUGS (2)
  1. ZOLEDRONIC ACID [Suspect]
     Indication: METASTASES TO BONE
     Dosage: 4 MG VIA 15-MIN INFUSION IN 100 ML EVERY 4 WEEKS
  2. CHEMOTHERAPEUTICS [Concomitant]

REACTIONS (1)
  - OSTEONECROSIS OF JAW [None]
